FAERS Safety Report 19212244 (Version 1)
Quarter: 2021Q2

REPORT INFORMATION
  Report Type: Spontaneous
  Country: BR (occurrence: BR)
  Receive Date: 20210504
  Receipt Date: 20210504
  Transmission Date: 20210717
  Serious: Yes (Death, Hospitalization, Other)
  Sender: FDA-Public Use
  Company Number: BR-ROCHE-2820922

PATIENT
  Age: 64 Year
  Sex: Female

DRUGS (1)
  1. DIAZEPAM. [Suspect]
     Active Substance: DIAZEPAM
     Indication: PAIN
     Route: 065

REACTIONS (9)
  - Blood glucose increased [Not Recovered/Not Resolved]
  - Ill-defined disorder [Not Recovered/Not Resolved]
  - Gait inability [Not Recovered/Not Resolved]
  - Acidosis [Not Recovered/Not Resolved]
  - Toxicity to various agents [Unknown]
  - COVID-19 [Fatal]
  - Diabetic metabolic decompensation [Not Recovered/Not Resolved]
  - Speech disorder [Not Recovered/Not Resolved]
  - Lethargy [Not Recovered/Not Resolved]
